FAERS Safety Report 9837889 (Version 1)
Quarter: 2014Q1

REPORT INFORMATION
  Report Type: Spontaneous
  Country: US (occurrence: None)
  Receive Date: 20140117
  Receipt Date: 20140117
  Transmission Date: 20141002
  Serious: Yes (Life-Threatening, Hospitalization)
  Sender: FDA-Public Use
  Company Number: None

PATIENT
  Age: 71 Year
  Sex: Male
  Weight: 72.3 kg

DRUGS (1)
  1. DEXTROSE/HEPARIN [Suspect]
     Indication: PULMONARY EMBOLISM
     Dates: start: 20131112, end: 20131115

REACTIONS (5)
  - Heparin-induced thrombocytopenia [None]
  - Deep vein thrombosis [None]
  - Refusal of treatment by patient [None]
  - Hypercapnia [None]
  - Drug hypersensitivity [None]
